FAERS Safety Report 7693416-1 (Version None)
Quarter: 2011Q3

REPORT INFORMATION
  Report Type: 
  Country: None (occurrence: None)
  Receive Date: 20110819
  Receipt Date: 20110811
  Transmission Date: 20111222
  Serious: Yes (Hospitalization, Other)
  Sender: FDA-Public Use
  Company Number: US-ACTELION-A-US2011-52174

PATIENT

DRUGS (8)
  1. WARFARIN SODIUM [Concomitant]
  2. ALBUTEROL SULFATE AUTOHALER [Concomitant]
  3. TRACLEER [Suspect]
     Indication: PULMONARY ARTERIAL HYPERTENSION
     Dosage: 125 MG, BID
     Route: 048
     Dates: start: 20040806, end: 20110729
  4. LORAZEPAM [Concomitant]
  5. REVATIO [Concomitant]
  6. VICODIN [Concomitant]
  7. LASIX [Concomitant]
  8. POTASSIUM CHLORIDE [Concomitant]

REACTIONS (10)
  - ASPARTATE AMINOTRANSFERASE INCREASED [None]
  - FLUID RETENTION [None]
  - LIVER FUNCTION TEST ABNORMAL [None]
  - PULMONARY ARTERIAL HYPERTENSION [None]
  - FATIGUE [None]
  - FEELING ABNORMAL [None]
  - ALANINE AMINOTRANSFERASE INCREASED [None]
  - BLOOD ALKALINE PHOSPHATASE INCREASED [None]
  - ADVERSE EVENT [None]
  - RENAL DISORDER [None]
